FAERS Safety Report 5398492-7 (Version None)
Quarter: 2007Q3

REPORT INFORMATION
  Report Type: 
  Country: None (occurrence: None)
  Receive Date: 20070726
  Receipt Date: 20070205
  Transmission Date: 20080115
  Serious: No
  Sender: FDA-Public Use
  Company Number: US-AMGEN-KDL210092

PATIENT
  Sex: Male
  Weight: 158.9 kg

DRUGS (11)
  1. PROCRIT [Suspect]
     Indication: RENAL FAILURE CHRONIC
  2. ALEVE [Concomitant]
  3. BYETTA [Concomitant]
  4. STARLIX [Concomitant]
  5. SIMVASTATIN [Concomitant]
  6. VITAMINS NOS [Concomitant]
  7. CLONIDINE [Concomitant]
  8. FUROSEMIDE [Concomitant]
  9. TAMSULOSIN HCL [Concomitant]
  10. GLIPIZIDE [Concomitant]
  11. DIOVAN [Concomitant]

REACTIONS (1)
  - BLOOD GLUCOSE INCREASED [None]
